FAERS Safety Report 8607051 (Version 3)
Quarter: 2014Q1

REPORT INFORMATION
  Report Type: Spontaneous
  Country: US (occurrence: US)
  Receive Date: 20120611
  Receipt Date: 20140108
  Transmission Date: 20141002
  Serious: Yes (Other)
  Sender: FDA-Public Use
  Company Number: US-ASTRAZENECA-2012SE35899

PATIENT
  Age: 48 Year
  Sex: Male
  Weight: 86.2 kg

DRUGS (14)
  1. NEXIUM [Suspect]
     Indication: PEPTIC ULCER
     Dosage: 2 TIMES DAILY
     Route: 048
     Dates: start: 2004, end: 2013
  2. NEXIUM [Suspect]
     Indication: PEPTIC ULCER
     Route: 048
     Dates: start: 20091006
  3. NEXIUM [Suspect]
     Indication: PEPTIC ULCER
     Route: 048
     Dates: start: 20100216
  4. PREVACID OTC [Concomitant]
     Dates: end: 2004
  5. FOSAMAX [Concomitant]
  6. ATENOLOL [Concomitant]
  7. CALCIUM CARBONATE [Concomitant]
     Dates: start: 20091006
  8. FLOMAX [Concomitant]
     Dates: start: 20091006
  9. KLONOPIN [Concomitant]
     Dates: start: 20091006
  10. SEROQUEL [Concomitant]
     Dates: start: 20091006
  11. ZYPREXA [Concomitant]
     Dates: start: 20091006
  12. VITAMIN D3 [Concomitant]
     Dosage: 800 IU DAILY
     Dates: start: 20110211
  13. NEURONTIN [Concomitant]
     Dates: start: 20131007
  14. ALLOPURINOL [Concomitant]
     Dates: start: 20131007

REACTIONS (13)
  - Intervertebral disc protrusion [Unknown]
  - Nerve injury [Unknown]
  - Cervical vertebral fracture [Unknown]
  - Cervical radiculopathy [Unknown]
  - Osteoporosis [Unknown]
  - Spinal fracture [Unknown]
  - Bone density decreased [Unknown]
  - Multiple fractures [Unknown]
  - Carpal tunnel syndrome [Unknown]
  - Skeletal injury [Unknown]
  - Bone pain [Unknown]
  - Arthritis [Unknown]
  - Intervertebral disc degeneration [Unknown]
